FAERS Safety Report 25230469 (Version 1)
Quarter: 2025Q2

REPORT INFORMATION
  Report Type: Spontaneous
  Country: US (occurrence: US)
  Receive Date: 20250423
  Receipt Date: 20250423
  Transmission Date: 20250717
  Serious: Yes (Hospitalization, Other)
  Sender: AMNEAL
  Company Number: US-AMNEAL PHARMACEUTICALS-2025-AMRX-01484

PATIENT
  Age: 43 Year
  Sex: Female

DRUGS (11)
  1. DOCETAXEL [Suspect]
     Active Substance: DOCETAXEL
     Indication: Breast cancer
     Dosage: 75 MILLIGRAM/SQ. METER, EVERY 3WK
     Route: 065
  2. CARBOPLATIN [Suspect]
     Active Substance: CARBOPLATIN
     Indication: Breast cancer
     Dosage: AREA UNDER THE CURVE (AUC) OF 6, EVERY 3 WEEKS
     Route: 065
  3. CARBOPLATIN [Suspect]
     Active Substance: CARBOPLATIN
  4. TRASTUZUMAB [Suspect]
     Active Substance: TRASTUZUMAB
     Indication: Breast cancer
     Dosage: 8 MILLIGRAM/KILOGRAM, EVERY 3 WEEKS
     Route: 065
  5. TRASTUZUMAB [Suspect]
     Active Substance: TRASTUZUMAB
     Dosage: 6 MILLIGRAM/KILOGRAM, EVERY 3 WEEKS
     Route: 065
  6. PERTUZUMAB [Suspect]
     Active Substance: PERTUZUMAB
     Indication: Breast cancer
     Dosage: 840 MILLIGRAM, EVERY 3 WEEKS
     Route: 065
  7. PERTUZUMAB [Suspect]
     Active Substance: PERTUZUMAB
     Dosage: 420 MILLIGRAM, EVERY 3WK
     Route: 065
  8. APREPITANT [Concomitant]
     Active Substance: APREPITANT
     Indication: Premedication
     Route: 065
  9. DEXAMETHASONE [Concomitant]
     Active Substance: DEXAMETHASONE
     Indication: Premedication
     Route: 065
  10. PALONOSETRON [Concomitant]
     Active Substance: PALONOSETRON
     Indication: Premedication
     Route: 065
  11. PEGFILGRASTIM APGF [Concomitant]
     Indication: Product used for unknown indication
     Route: 065

REACTIONS (1)
  - Cystitis haemorrhagic [Recovered/Resolved]
